FAERS Safety Report 16810873 (Version 1)
Quarter: 2019Q3

REPORT INFORMATION
  Report Type: Spontaneous
  Country: US (occurrence: US)
  Receive Date: 20190916
  Receipt Date: 20190916
  Transmission Date: 20191005
  Serious: No
  Sender: FDA-Public Use
  Company Number: US-HORIZON-NVC-DUE-0499-2019

PATIENT
  Age: 63 Year
  Sex: Female

DRUGS (1)
  1. DUEXIS [Suspect]
     Active Substance: FAMOTIDINE\IBUPROFEN
     Indication: MUSCLE SPASMS
     Dosage: WEANED TO 1 TAB QD OR NOT AT ALL

REACTIONS (4)
  - Drug ineffective for unapproved indication [Recovering/Resolving]
  - Intentional product use issue [Unknown]
  - Off label use [Unknown]
  - Insurance issue [Unknown]
